FAERS Safety Report 12215167 (Version 1)
Quarter: 2016Q1

REPORT INFORMATION
  Report Type: Spontaneous
  Country: None (occurrence: CO)
  Receive Date: 20160328
  Receipt Date: 20160328
  Transmission Date: 20160526
  Serious: Yes (Hospitalization)
  Sender: FDA-Public Use
  Company Number: CO-POPULATION COUNCIL, INC.-1049826

PATIENT
  Sex: Female
  Weight: 1.9 kg

DRUGS (1)
  1. JADELLE [Suspect]
     Active Substance: LEVONORGESTREL
     Indication: CONTRACEPTION
     Route: 064
     Dates: start: 20100121, end: 20100601

REACTIONS (4)
  - Pregnancy with implant contraceptive [None]
  - Low birth weight baby [None]
  - Maternal drugs affecting foetus [None]
  - Premature baby [None]

NARRATIVE: CASE EVENT DATE: 20100920
